FAERS Safety Report 12640457 (Version 1)
Quarter: 2016Q3

REPORT INFORMATION
  Report Type: Spontaneous
  Country: BR (occurrence: BR)
  Receive Date: 20160810
  Receipt Date: 20160810
  Transmission Date: 20161109
  Serious: Yes (Hospitalization, Other)
  Sender: FDA-Public Use
  Company Number: BR-PFIZER INC-2016370093

PATIENT
  Age: 73 Year
  Sex: Male
  Weight: 62 kg

DRUGS (2)
  1. XALATAN [Suspect]
     Active Substance: LATANOPROST
     Indication: GLAUCOMA
     Dosage: ONE DROP ON EACH EYE AT NIGHT
     Route: 047
     Dates: start: 2014, end: 201504
  2. LUMIGAN [Concomitant]
     Active Substance: BIMATOPROST
     Indication: GLAUCOMA
     Dosage: UNK
     Route: 047
     Dates: start: 20150413, end: 20151112

REACTIONS (3)
  - Glaucoma [Unknown]
  - Mitral valve disease [Unknown]
  - Cataract [Unknown]

NARRATIVE: CASE EVENT DATE: 2014
